FAERS Safety Report 11309115 (Version 3)
Quarter: 2015Q3

REPORT INFORMATION
  Report Type: Report from Study
  Country: KR (occurrence: KR)
  Receive Date: 20150724
  Receipt Date: 20150807
  Transmission Date: 20151125
  Serious: Yes (Death, Hospitalization)
  Sender: FDA-Public Use
  Company Number: KR-SA-2015SA050403

PATIENT
  Age: 7 Year
  Sex: Female
  Weight: 21.6 kg

DRUGS (165)
  1. ETOPOSIDE. [Suspect]
     Active Substance: ETOPOSIDE
     Indication: ACUTE LYMPHOCYTIC LEUKAEMIA
     Route: 042
     Dates: start: 20150619, end: 20150620
  2. CYCLOPHOSPHAMIDE. [Suspect]
     Active Substance: CYCLOPHOSPHAMIDE
     Indication: ACUTE LYMPHOCYTIC LEUKAEMIA
     Route: 042
     Dates: start: 20150621, end: 20150621
  3. TAGAMET [Concomitant]
     Active Substance: CIMETIDINE
     Indication: PEPTIC ULCER
     Route: 042
     Dates: start: 20150403, end: 20150417
  4. NEUTROGIN [Concomitant]
     Active Substance: LENOGRASTIM
     Indication: COLONY STIMULATING FACTOR PROPHYLAXIS
     Route: 042
     Dates: start: 20150630, end: 20150714
  5. PENIRAMIN [Concomitant]
     Indication: PROPHYLAXIS
     Route: 042
     Dates: start: 20150403, end: 20150410
  6. ATIVAN [Concomitant]
     Active Substance: LORAZEPAM
     Indication: ANTIEMETIC SUPPORTIVE CARE
     Route: 042
     Dates: start: 20150403, end: 20150409
  7. NYSTATIN. [Concomitant]
     Active Substance: NYSTATIN
     Indication: ANTIFUNGAL TREATMENT
     Route: 048
     Dates: start: 20150504
  8. CEFPIRAN [Concomitant]
     Indication: ANTIBIOTIC THERAPY
     Route: 042
     Dates: start: 20150407, end: 20150407
  9. MEROPEN [Concomitant]
     Active Substance: MEROPENEM
     Indication: ANTIBIOTIC THERAPY
     Route: 042
     Dates: start: 20150714, end: 20150714
  10. MEROPEN [Concomitant]
     Active Substance: MEROPENEM
     Indication: ANTIFUNGAL TREATMENT
     Route: 042
     Dates: start: 20150714, end: 20150714
  11. SEPTRIN [Concomitant]
     Active Substance: SULFAMETHOXAZOLE\TRIMETHOPRIM
     Indication: ANALGESIC THERAPY
     Dosage: 0.75
     Route: 048
     Dates: start: 20150513, end: 20150514
  12. KLARICID [Concomitant]
     Active Substance: CLARITHROMYCIN
     Indication: ANTIBIOTIC THERAPY
     Route: 042
     Dates: start: 20150504, end: 20150506
  13. OMNICEF [Concomitant]
     Active Substance: CEFDINIR
     Indication: ANTIBIOTIC THERAPY
     Route: 048
     Dates: start: 20150512, end: 20150515
  14. GODEX [Concomitant]
     Route: 048
     Dates: start: 20150516
  15. PHOSTEN [Concomitant]
     Route: 042
     Dates: start: 20150709, end: 20150712
  16. LASIX [Concomitant]
     Active Substance: FUROSEMIDE
     Indication: DIURETIC THERAPY
     Route: 042
     Dates: start: 20150709, end: 20150712
  17. SALBUTAMOL SULFATE [Concomitant]
     Active Substance: ALBUTEROL SULFATE
     Dosage: 1 PACK, DRN
     Dates: start: 20150630, end: 20150711
  18. ULINASTATIN [Concomitant]
     Active Substance: ULINASTATIN
     Dates: start: 20150630, end: 20150714
  19. DEFIBROTIDE [Concomitant]
     Active Substance: DEFIBROTIDE (BOVINE)
     Route: 042
     Dates: start: 20150709, end: 20150709
  20. AMBISOME [Concomitant]
     Active Substance: AMPHOTERICIN B
     Indication: ANTIFUNGAL TREATMENT
     Route: 042
     Dates: start: 20150709, end: 20150713
  21. NIMBEX [Concomitant]
     Active Substance: CISATRACURIUM BESYLATE
     Route: 042
     Dates: start: 20150711, end: 20150714
  22. HUMULIN R [Concomitant]
     Active Substance: INSULIN HUMAN
     Indication: DIABETES MELLITUS
     Dosage: DOSE:2 UNIT(S)
     Route: 042
     Dates: start: 20150713, end: 20150713
  23. VASOPRESSIN. [Concomitant]
     Active Substance: VASOPRESSIN
     Dosage: DOSE:26.4 UNIT(S)
     Route: 042
     Dates: start: 20150714, end: 20150714
  24. ETOPOSIDE. [Suspect]
     Active Substance: ETOPOSIDE
     Indication: ACUTE LYMPHOCYTIC LEUKAEMIA
     Route: 065
     Dates: start: 20150513, end: 20150516
  25. CYCLOPHOSPHAMIDE. [Suspect]
     Active Substance: CYCLOPHOSPHAMIDE
     Indication: ACUTE LYMPHOCYTIC LEUKAEMIA
     Route: 065
     Dates: start: 20150402, end: 20150407
  26. UROMITEXAN [Concomitant]
     Active Substance: MESNA
     Indication: HYPERSENSITIVITY
     Route: 042
     Dates: start: 20150403, end: 20150407
  27. NEUTROGIN [Concomitant]
     Active Substance: LENOGRASTIM
     Indication: COLONY STIMULATING FACTOR PROPHYLAXIS
     Route: 042
     Dates: start: 20150507, end: 20150512
  28. MACPERAN [Concomitant]
     Indication: PROPHYLAXIS
     Route: 042
     Dates: start: 20150403, end: 20150409
  29. PENIRAMIN [Concomitant]
     Indication: ANTIALLERGIC THERAPY
     Route: 048
     Dates: start: 20150409, end: 20150412
  30. ACETAMINOPHEN. [Concomitant]
     Active Substance: ACETAMINOPHEN
     Indication: ANALGESIC THERAPY
     Route: 048
     Dates: start: 20150405, end: 20150407
  31. ACETAMINOPHEN. [Concomitant]
     Active Substance: ACETAMINOPHEN
     Indication: ANALGESIC THERAPY
     Route: 048
     Dates: start: 20150417
  32. ISEPAMICIN [Concomitant]
     Active Substance: ISEPAMICIN
     Indication: ANTIBIOTIC THERAPY
     Route: 042
     Dates: start: 20150407, end: 20150407
  33. MEROPEN [Concomitant]
     Active Substance: MEROPENEM
     Indication: ANTIFUNGAL TREATMENT
     Route: 042
     Dates: start: 20150407, end: 20150414
  34. CANCIDAS [Concomitant]
     Active Substance: CASPOFUNGIN ACETATE
     Indication: ANTIFUNGAL TREATMENT
     Route: 042
     Dates: start: 20150407, end: 20150407
  35. CANCIDAS [Concomitant]
     Active Substance: CASPOFUNGIN ACETATE
     Indication: ANTIFUNGAL TREATMENT
     Route: 042
     Dates: start: 20150630, end: 20150709
  36. SOLONDO [Concomitant]
     Active Substance: PREDNISOLONE
     Indication: STEROID THERAPY
     Route: 048
     Dates: start: 20150410, end: 20150412
  37. CODEINE [Concomitant]
     Active Substance: CODEINE
     Route: 048
     Dates: start: 20150710, end: 20150710
  38. ALBUMIN [Concomitant]
     Active Substance: ALBUMIN (HUMAN)
     Route: 042
     Dates: start: 20150703, end: 20150712
  39. KETAMINE [Concomitant]
     Active Substance: KETAMINE
     Route: 042
     Dates: start: 20150711, end: 20150711
  40. MIDAZOLAM [Concomitant]
     Active Substance: MIDAZOLAM\MIDAZOLAM HYDROCHLORIDE
     Route: 042
     Dates: start: 20150709, end: 20150709
  41. FENTANYL. [Concomitant]
     Active Substance: FENTANYL
     Route: 042
     Dates: start: 20150711, end: 20150711
  42. HEPA-MERZ [Concomitant]
     Route: 042
     Dates: start: 20150713, end: 20150714
  43. EPINEPHRINE. [Concomitant]
     Active Substance: EPINEPHRINE
     Route: 042
     Dates: start: 20150714, end: 20150714
  44. HYDROCORTISONE. [Concomitant]
     Active Substance: HYDROCORTISONE
     Route: 042
     Dates: start: 20150714, end: 20150714
  45. ETOPOSIDE. [Suspect]
     Active Substance: ETOPOSIDE
     Indication: ACUTE LYMPHOCYTIC LEUKAEMIA
     Route: 065
     Dates: start: 20150402, end: 20150407
  46. DEXAMETHASONE. [Concomitant]
     Active Substance: DEXAMETHASONE
     Indication: ANTIEMETIC SUPPORTIVE CARE
     Route: 042
     Dates: start: 20150702, end: 20150714
  47. PENIRAMIN [Concomitant]
     Indication: ANTIALLERGIC THERAPY
     Route: 042
     Dates: start: 20150403, end: 20150410
  48. PENIRAMIN [Concomitant]
     Indication: ANTIALLERGIC THERAPY
     Route: 048
     Dates: start: 20150414
  49. ACETAMINOPHEN. [Concomitant]
     Active Substance: ACETAMINOPHEN
     Indication: ANALGESIC THERAPY
     Route: 048
     Dates: start: 20150516
  50. ISEPAMICIN [Concomitant]
     Active Substance: ISEPAMICIN
     Indication: ANTIBIOTIC THERAPY
     Route: 042
     Dates: start: 20150417
  51. SOLONDO [Concomitant]
     Active Substance: PREDNISOLONE
     Indication: STEROID THERAPY
     Route: 048
     Dates: start: 20150413, end: 20150415
  52. VARIDASE [Concomitant]
     Indication: ANTIINFLAMMATORY THERAPY
     Dosage: 0.6T
     Route: 048
     Dates: start: 20150414
  53. DIFLUCAN [Concomitant]
     Active Substance: FLUCONAZOLE
     Indication: ANTIFUNGAL TREATMENT
     Route: 048
     Dates: start: 20150512
  54. LASIX [Concomitant]
     Active Substance: FUROSEMIDE
     Indication: DIURETIC THERAPY
     Route: 042
     Dates: start: 20150713, end: 20150713
  55. MASI [Concomitant]
     Indication: MUSCLE SPASMS
     Dosage: FM
     Route: 042
     Dates: start: 20150701, end: 20150701
  56. MASI [Concomitant]
     Indication: MUSCLE SPASMS
     Route: 042
     Dates: start: 20150703, end: 20150706
  57. MIDAZOLAM [Concomitant]
     Active Substance: MIDAZOLAM\MIDAZOLAM HYDROCHLORIDE
     Route: 042
     Dates: start: 20150709, end: 20150711
  58. MIDAZOLAM [Concomitant]
     Active Substance: MIDAZOLAM\MIDAZOLAM HYDROCHLORIDE
     Route: 042
     Dates: start: 20150711, end: 20150711
  59. KYNEX [Concomitant]
     Active Substance: SULFAMETHOXYPYRIDAZINE
     Dosage: 1 BOX, DRO, OPTHALMIC SOLUTION
     Dates: start: 20150710, end: 20150714
  60. VECURONIUM [Concomitant]
     Active Substance: VECURONIUM BROMIDE
     Route: 042
     Dates: start: 20150711, end: 20150711
  61. MUCOMYST [Concomitant]
     Active Substance: ACETYLCYSTEINE
     Indication: PRODUCTIVE COUGH
     Dosage: DRN
     Dates: start: 20150711, end: 20150712
  62. CALCIUM GLUCONATE. [Concomitant]
     Active Substance: CALCIUM GLUCONATE
     Route: 042
     Dates: start: 20150713, end: 20150713
  63. CLOFARABINE [Suspect]
     Active Substance: CLOFARABINE
     Indication: ACUTE LYMPHOCYTIC LEUKAEMIA
     Route: 042
     Dates: start: 20150402, end: 20150407
  64. DEXAMETHASONE. [Concomitant]
     Active Substance: DEXAMETHASONE
     Indication: ANTIEMETIC SUPPORTIVE CARE
     Route: 042
     Dates: start: 20150403, end: 20150406
  65. DEXAMETHASONE. [Concomitant]
     Active Substance: DEXAMETHASONE
     Indication: ANTIEMETIC SUPPORTIVE CARE
     Route: 042
     Dates: start: 20150407, end: 20150409
  66. SODIUM BICARBONATE. [Concomitant]
     Active Substance: SODIUM BICARBONATE
     Indication: HYPERSENSITIVITY
     Route: 042
     Dates: start: 20150403, end: 20150408
  67. MACPERAN [Concomitant]
     Indication: PROPHYLAXIS
     Route: 042
     Dates: start: 20150513
  68. PENIRAMIN [Concomitant]
     Indication: PROPHYLAXIS
     Route: 048
     Dates: start: 20150414
  69. ACETAMINOPHEN. [Concomitant]
     Active Substance: ACETAMINOPHEN
     Indication: ANALGESIC THERAPY
     Route: 048
     Dates: start: 20150412, end: 20150412
  70. TAPOCIN [Concomitant]
     Indication: ANTIBIOTIC THERAPY
     Route: 042
     Dates: start: 20150630, end: 20150713
  71. MEROPEN [Concomitant]
     Active Substance: MEROPENEM
     Indication: ANTIBIOTIC THERAPY
     Route: 042
     Dates: start: 20150407, end: 20150414
  72. MEROPEN [Concomitant]
     Active Substance: MEROPENEM
     Indication: ANTIFUNGAL TREATMENT
     Route: 042
     Dates: start: 20150630
  73. CANCIDAS [Concomitant]
     Active Substance: CASPOFUNGIN ACETATE
     Indication: ANTIFUNGAL TREATMENT
     Route: 042
     Dates: start: 20150408, end: 20150415
  74. SEPTRIN [Concomitant]
     Active Substance: SULFAMETHOXAZOLE\TRIMETHOPRIM
     Indication: ANALGESIC THERAPY
     Dosage: 0.75
     Route: 048
     Dates: start: 20150408, end: 20150409
  75. PHOSTEN [Concomitant]
     Route: 042
     Dates: start: 20150704, end: 20150709
  76. LASIX [Concomitant]
     Active Substance: FUROSEMIDE
     Indication: DIURETIC THERAPY
     Route: 042
     Dates: start: 20150703, end: 20150703
  77. LASIX [Concomitant]
     Active Substance: FUROSEMIDE
     Indication: DIURETIC THERAPY
     Route: 042
     Dates: start: 20150710, end: 20150710
  78. LASIX [Concomitant]
     Active Substance: FUROSEMIDE
     Indication: DIURETIC THERAPY
     Route: 042
     Dates: start: 20150708, end: 20150712
  79. SALBUTAMOL SULFATE [Concomitant]
     Active Substance: ALBUTEROL SULFATE
     Dosage: 0.4 PACK, DRN
     Dates: start: 20150711, end: 20150713
  80. CODEINE [Concomitant]
     Active Substance: CODEINE
     Route: 048
     Dates: start: 20150709, end: 20150709
  81. MUCOSTEN [Concomitant]
     Route: 042
     Dates: start: 20150705, end: 20150714
  82. ANTITHROMBIN III [Concomitant]
     Active Substance: ANTITHROMBIN III HUMAN
     Dosage: DOSE:1000 UNIT(S)
     Route: 042
     Dates: start: 20150707, end: 20150707
  83. SMOFKABIVEN [Concomitant]
     Active Substance: UNSPECIFIED INGREDIENT
     Route: 042
     Dates: start: 20150709, end: 20150712
  84. DOPAMINE [Concomitant]
     Active Substance: DOPAMINE\DOPAMINE HYDROCHLORIDE
     Route: 042
     Dates: start: 20150711, end: 20150714
  85. NOREPINEPHRINE [Concomitant]
     Active Substance: NOREPINEPHRINE\NOREPINEPHRINE BITARTRATE
     Route: 042
     Dates: start: 20150711, end: 20150714
  86. DUPHALAC [Concomitant]
     Active Substance: LACTULOSE
     Route: 048
     Dates: start: 20150713, end: 20150713
  87. CLOFARABINE [Suspect]
     Active Substance: CLOFARABINE
     Indication: ACUTE LYMPHOCYTIC LEUKAEMIA
     Route: 042
     Dates: start: 20150513, end: 20150516
  88. CLOFARABINE [Suspect]
     Active Substance: CLOFARABINE
     Indication: ACUTE LYMPHOCYTIC LEUKAEMIA
     Route: 042
     Dates: start: 20150621, end: 20150621
  89. DEXAMETHASONE. [Concomitant]
     Active Substance: DEXAMETHASONE
     Indication: ANTIEMETIC SUPPORTIVE CARE
     Route: 042
     Dates: start: 20150630, end: 20150710
  90. SODIUM BICARBONATE. [Concomitant]
     Active Substance: SODIUM BICARBONATE
     Indication: HYPERSENSITIVITY
     Route: 042
     Dates: start: 20150714, end: 20150714
  91. PENIRAMIN [Concomitant]
     Indication: ANTIALLERGIC THERAPY
     Route: 048
     Dates: start: 20150504, end: 20150512
  92. ATIVAN [Concomitant]
     Active Substance: LORAZEPAM
     Indication: ANTIEMETIC SUPPORTIVE CARE
     Route: 042
     Dates: start: 20150513, end: 20150515
  93. NYSTATIN. [Concomitant]
     Active Substance: NYSTATIN
     Indication: ANTIFUNGAL TREATMENT
     Route: 048
     Dates: start: 20150406
  94. CEFPIRAN [Concomitant]
     Indication: ANTIBIOTIC THERAPY
     Route: 042
     Dates: start: 20150414
  95. MEROPEN [Concomitant]
     Active Substance: MEROPENEM
     Indication: ANTIFUNGAL TREATMENT
     Route: 042
     Dates: start: 20150504, end: 20150506
  96. MEROPEN [Concomitant]
     Active Substance: MEROPENEM
     Indication: ANTIBIOTIC THERAPY
     Route: 042
     Dates: start: 20150630
  97. BISOLVON [Concomitant]
     Active Substance: BROMHEXINE HYDROCHLORIDE
     Indication: PRODUCTIVE COUGH
     Route: 048
     Dates: start: 20150504, end: 20150512
  98. ATOCK [Concomitant]
     Indication: PRODUCTIVE COUGH
     Route: 048
     Dates: start: 20150504, end: 20150512
  99. URSA [Concomitant]
     Route: 048
     Dates: start: 20150705, end: 20150714
  100. COTRIM [Concomitant]
     Active Substance: SULFAMETHOXAZOLE\TRIMETHOPRIM
     Route: 042
     Dates: start: 20150707, end: 20150707
  101. CURAN [Concomitant]
     Indication: PEPTIC ULCER
     Route: 042
     Dates: start: 20150630, end: 20150714
  102. DEFIBROTIDE [Concomitant]
     Active Substance: DEFIBROTIDE (BOVINE)
     Route: 042
     Dates: start: 20150712, end: 20150714
  103. FENTANYL. [Concomitant]
     Active Substance: FENTANYL
     Route: 042
     Dates: start: 20150712, end: 20150713
  104. FENTANYL. [Concomitant]
     Active Substance: FENTANYL
     Route: 042
     Dates: start: 20150712, end: 20150713
  105. HEPARIN [Concomitant]
     Active Substance: HEPARIN SODIUM
     Dosage: DOSE:5000 UNIT(S)
     Route: 042
     Dates: start: 20150713, end: 20150713
  106. CYCLOPHOSPHAMIDE. [Suspect]
     Active Substance: CYCLOPHOSPHAMIDE
     Indication: ACUTE LYMPHOCYTIC LEUKAEMIA
     Route: 042
     Dates: start: 20150619, end: 20150620
  107. TAGAMET [Concomitant]
     Active Substance: CIMETIDINE
     Indication: PEPTIC ULCER
     Route: 048
     Dates: start: 20150512, end: 20150517
  108. NEUTROGIN [Concomitant]
     Active Substance: LENOGRASTIM
     Indication: COLONY STIMULATING FACTOR PROPHYLAXIS
     Route: 042
     Dates: start: 20150504, end: 20150505
  109. ONSERAN [Concomitant]
     Indication: ANTIEMETIC SUPPORTIVE CARE
     Route: 048
     Dates: start: 20150403, end: 20150406
  110. ONSERAN [Concomitant]
     Indication: ANTIEMETIC SUPPORTIVE CARE
     Route: 042
     Dates: start: 20150513, end: 20150516
  111. PENIRAMIN [Concomitant]
     Indication: PROPHYLAXIS
     Route: 048
     Dates: start: 20150409, end: 20150412
  112. ATIVAN [Concomitant]
     Active Substance: LORAZEPAM
     Indication: ANTIEMETIC SUPPORTIVE CARE
     Route: 042
     Dates: start: 20150515
  113. TAPOCIN [Concomitant]
     Indication: ANTIBIOTIC THERAPY
     Route: 042
     Dates: start: 20150408, end: 20150412
  114. LEVOTUSS [Concomitant]
     Active Substance: LEVODROPROPIZINE
     Indication: PRODUCTIVE COUGH
     Route: 048
     Dates: start: 20150504, end: 20150512
  115. SMECTA [Concomitant]
     Active Substance: MONTMORILLONITE
     Indication: DIARRHOEA
     Route: 048
     Dates: start: 20150516
  116. FLAVINE ADENINE DINUCLEOTIDE [Concomitant]
     Dosage: IVF
     Dates: start: 20150701, end: 20150714
  117. PHOSTEN [Concomitant]
     Dosage: IVF
     Route: 042
     Dates: start: 20150701, end: 20150703
  118. LASIX [Concomitant]
     Active Substance: FUROSEMIDE
     Indication: DIURETIC THERAPY
     Dosage: IVH
     Route: 042
     Dates: start: 20150630, end: 20150713
  119. COTRIM [Concomitant]
     Active Substance: SULFAMETHOXAZOLE\TRIMETHOPRIM
     Dosage: IVF
     Route: 042
     Dates: start: 20150630, end: 20150710
  120. PULMICORT TURBUHALER [Concomitant]
     Active Substance: BUDESONIDE
     Indication: PRODUCTIVE COUGH
     Dosage: 0.2 PACK, DRN
     Dates: start: 20150630, end: 20150711
  121. ANTITHROMBIN III [Concomitant]
     Active Substance: ANTITHROMBIN III HUMAN
     Dosage: DOSE:500 UNIT(S)
     Route: 042
     Dates: start: 20150708, end: 20150710
  122. RIBAVIRIN. [Concomitant]
     Active Substance: RIBAVIRIN
     Route: 048
     Dates: start: 20150710, end: 20150710
  123. TOBRAMYCIN. [Concomitant]
     Active Substance: TOBRAMYCIN
     Dosage: DRO, OPTHALMIC SOLUTION
     Dates: start: 20150710, end: 20150714
  124. CLOFARABINE [Suspect]
     Active Substance: CLOFARABINE
     Indication: ACUTE LYMPHOCYTIC LEUKAEMIA
     Route: 042
     Dates: start: 20150619, end: 20150620
  125. ETOPOSIDE. [Suspect]
     Active Substance: ETOPOSIDE
     Indication: ACUTE LYMPHOCYTIC LEUKAEMIA
     Route: 042
     Dates: start: 20150621, end: 20150621
  126. UROMITEXAN [Concomitant]
     Active Substance: MESNA
     Indication: HYPERSENSITIVITY
     Route: 042
     Dates: start: 20150513, end: 20150517
  127. DEXAMETHASONE. [Concomitant]
     Active Substance: DEXAMETHASONE
     Indication: ANTIEMETIC SUPPORTIVE CARE
     Route: 042
     Dates: start: 20150513, end: 20150516
  128. PENIRAMIN [Concomitant]
     Indication: PROPHYLAXIS
     Route: 042
     Dates: start: 20150513
  129. PENIRAMIN [Concomitant]
     Indication: ANTIALLERGIC THERAPY
     Route: 042
     Dates: start: 20150513
  130. PENIRAMIN [Concomitant]
     Indication: PROPHYLAXIS
     Route: 048
     Dates: start: 20150504, end: 20150512
  131. PENIRAMIN [Concomitant]
     Indication: PROPHYLAXIS
     Route: 042
     Dates: start: 20150630, end: 20150709
  132. PENIRAMIN [Concomitant]
     Indication: ANTIALLERGIC THERAPY
     Route: 042
     Dates: start: 20150630, end: 20150709
  133. CEFPIRAN [Concomitant]
     Indication: ANTIBIOTIC THERAPY
     Route: 042
     Dates: start: 20150417
  134. CEFPIRAN [Concomitant]
     Indication: ANTIBIOTIC THERAPY
     Route: 042
     Dates: start: 20150506, end: 20150512
  135. TAPOCIN [Concomitant]
     Indication: ANTIBIOTIC THERAPY
     Route: 042
     Dates: start: 20150407, end: 20150407
  136. MEROPEN [Concomitant]
     Active Substance: MEROPENEM
     Indication: ANTIBIOTIC THERAPY
     Route: 042
     Dates: start: 20150504, end: 20150506
  137. TRIDOL [Concomitant]
     Indication: ANALGESIC THERAPY
     Route: 042
     Dates: start: 20150701, end: 20150708
  138. TRIDOL [Concomitant]
     Indication: ANALGESIC THERAPY
     Route: 042
     Dates: start: 20150703, end: 20150703
  139. KLARICID [Concomitant]
     Active Substance: CLARITHROMYCIN
     Indication: ANTIBIOTIC THERAPY
     Route: 042
     Dates: start: 20150630, end: 20150709
  140. LASIX [Concomitant]
     Active Substance: FUROSEMIDE
     Indication: DIURETIC THERAPY
     Route: 042
     Dates: start: 20150712, end: 20150713
  141. LANSTON LFDT [Concomitant]
     Active Substance: LANSOPRAZOLE
     Indication: PEPTIC ULCER
     Route: 048
     Dates: start: 20150630, end: 20150713
  142. MASI [Concomitant]
     Indication: SEIZURE
     Dosage: FM
     Route: 042
     Dates: start: 20150701, end: 20150701
  143. MASI [Concomitant]
     Indication: SEIZURE
     Route: 042
     Dates: start: 20150709, end: 20150712
  144. MORPHINE SULFATE. [Concomitant]
     Active Substance: MORPHINE SULFATE
     Route: 042
     Dates: start: 20150702, end: 20150708
  145. MAGNESIUM [Concomitant]
     Active Substance: MAGNESIUM
     Route: 042
     Dates: start: 20150704, end: 20150709
  146. HOKUNALIN [Concomitant]
     Active Substance: TULOBUTEROL
     Indication: PRODUCTIVE COUGH
     Dosage: PATCH, DRS
     Dates: start: 20150706, end: 20150710
  147. FENTANYL. [Concomitant]
     Active Substance: FENTANYL
     Route: 042
     Dates: start: 20150711, end: 20150711
  148. RIBAVIRIN. [Concomitant]
     Active Substance: RIBAVIRIN
     Route: 048
     Dates: start: 20150710, end: 20150713
  149. RIBAVIRIN. [Concomitant]
     Active Substance: RIBAVIRIN
     Route: 048
     Dates: start: 20150713, end: 20150713
  150. CYCLOPHOSPHAMIDE. [Suspect]
     Active Substance: CYCLOPHOSPHAMIDE
     Indication: ACUTE LYMPHOCYTIC LEUKAEMIA
     Route: 065
     Dates: start: 20150513, end: 20150516
  151. SODIUM BICARBONATE. [Concomitant]
     Active Substance: SODIUM BICARBONATE
     Indication: HYPERSENSITIVITY
     Route: 042
     Dates: start: 20150701, end: 20150703
  152. NEUTROGIN [Concomitant]
     Active Substance: LENOGRASTIM
     Indication: COLONY STIMULATING FACTOR PROPHYLAXIS
     Route: 042
     Dates: start: 20150403, end: 20150411
  153. TRIDOL [Concomitant]
     Indication: ANALGESIC THERAPY
     Route: 042
     Dates: start: 20150407, end: 20150407
  154. RHINATHIOL [Concomitant]
     Indication: PRODUCTIVE COUGH
     Route: 048
     Dates: start: 20150409, end: 20150412
  155. DIFLUCAN [Concomitant]
     Active Substance: FLUCONAZOLE
     Indication: ANTIFUNGAL TREATMENT
     Route: 048
     Dates: start: 20150415
  156. URSA [Concomitant]
     Route: 048
     Dates: start: 20150516
  157. COTRIM [Concomitant]
     Active Substance: SULFAMETHOXAZOLE\TRIMETHOPRIM
     Route: 042
     Dates: start: 20150713, end: 20150714
  158. VITAMIN K1 [Concomitant]
     Active Substance: PHYTONADIONE
     Indication: PRODUCTIVE COUGH
     Route: 042
     Dates: start: 20150630, end: 20150713
  159. CODEINE [Concomitant]
     Active Substance: CODEINE
     Route: 048
     Dates: start: 20150630, end: 20150710
  160. MASI [Concomitant]
     Indication: SEIZURE
     Route: 042
     Dates: start: 20150703, end: 20150706
  161. MASI [Concomitant]
     Indication: MUSCLE SPASMS
     Route: 042
     Dates: start: 20150709, end: 20150712
  162. MIDAZOLAM [Concomitant]
     Active Substance: MIDAZOLAM\MIDAZOLAM HYDROCHLORIDE
     Route: 042
     Dates: start: 20150711, end: 20150714
  163. FENTANYL. [Concomitant]
     Active Substance: FENTANYL
     Route: 042
     Dates: start: 20150709, end: 20150709
  164. FENTANYL. [Concomitant]
     Active Substance: FENTANYL
     Route: 042
     Dates: start: 20150711, end: 20150711
  165. ZITHROMAX [Concomitant]
     Active Substance: AZITHROMYCIN DIHYDRATE
     Indication: ANTIFUNGAL TREATMENT
     Route: 042
     Dates: start: 20150710, end: 20150713

REACTIONS (2)
  - Febrile neutropenia [Recovered/Resolved]
  - Febrile neutropenia [Fatal]

NARRATIVE: CASE EVENT DATE: 20150417
